FAERS Safety Report 17202024 (Version 1)
Quarter: 2019Q4

REPORT INFORMATION
  Report Type: Spontaneous
  Country: US (occurrence: US)
  Receive Date: 20191226
  Receipt Date: 20191226
  Transmission Date: 20200122
  Serious: Yes (Other)
  Sender: FDA-Public Use
  Company Number: US-ELI_LILLY_AND_COMPANY-US201912010704

PATIENT
  Age: 36 Year
  Sex: Female

DRUGS (5)
  1. METHOTREXATE. [Concomitant]
     Active Substance: METHOTREXATE
     Indication: PRODUCT USED FOR UNKNOWN INDICATION
  2. PROZAC [Suspect]
     Active Substance: FLUOXETINE HYDROCHLORIDE
     Indication: DEPRESSION
     Dosage: UNK UNK, UNKNOWN
     Route: 065
     Dates: start: 2019
  3. HUMIRA [Suspect]
     Active Substance: ADALIMUMAB
     Indication: RHEUMATOID ARTHRITIS
     Dosage: 40 MG, ONCE IN EVERY 14 DAYS
     Route: 058
     Dates: start: 20190429, end: 20190615
  4. HUMIRA [Suspect]
     Active Substance: ADALIMUMAB
     Dosage: 40 MG, ONCE IN EVERY 14 DAYS
     Route: 058
     Dates: start: 2019
  5. MEDROL [Concomitant]
     Active Substance: METHYLPREDNISOLONE
     Indication: PRODUCT USED FOR UNKNOWN INDICATION

REACTIONS (22)
  - Musculoskeletal stiffness [Unknown]
  - Hypoaesthesia [Unknown]
  - Joint stiffness [Recovered/Resolved]
  - Discomfort [Not Recovered/Not Resolved]
  - Pelvic pain [Unknown]
  - Depression [Unknown]
  - Migraine [Unknown]
  - Neck pain [Unknown]
  - Tooth fracture [Unknown]
  - Tenderness [Unknown]
  - Ear infection [Unknown]
  - Upper respiratory tract infection [Unknown]
  - Metrorrhagia [Unknown]
  - Pain [Not Recovered/Not Resolved]
  - Arthralgia [Recovering/Resolving]
  - Rheumatoid arthritis [Unknown]
  - Sinusitis [Unknown]
  - Gait disturbance [Not Recovered/Not Resolved]
  - Fatigue [Not Recovered/Not Resolved]
  - Gingivitis [Unknown]
  - Back pain [Not Recovered/Not Resolved]
  - Pain in extremity [Not Recovered/Not Resolved]

NARRATIVE: CASE EVENT DATE: 2019
